FAERS Safety Report 15065554 (Version 1)
Quarter: 2018Q2

REPORT INFORMATION
  Report Type: Spontaneous
  Country: US (occurrence: US)
  Receive Date: 20180605
  Receipt Date: 20180605
  Transmission Date: 20180711
  Serious: Yes (Hospitalization)
  Sender: FDA-Public Use
  Company Number: None

PATIENT
  Age: 60 Year
  Sex: Female

DRUGS (1)
  1. MILNACIPRAN [Suspect]
     Active Substance: MILNACIPRAN
     Indication: FIBROMYALGIA
     Route: 048
     Dates: start: 20170808, end: 20170822

REACTIONS (2)
  - Hypertension [None]
  - Chest pain [None]

NARRATIVE: CASE EVENT DATE: 20170822
